FAERS Safety Report 18233790 (Version 3)
Quarter: 2020Q3

REPORT INFORMATION
  Report Type: Spontaneous
  Country: US (occurrence: US)
  Receive Date: 20200904
  Receipt Date: 20200909
  Transmission Date: 20201103
  Serious: No
  Sender: FDA-Public Use
  Company Number: US-PFIZER INC-2020342752

PATIENT
  Age: 7 Decade
  Sex: Female
  Weight: 63.5 kg

DRUGS (2)
  1. PREMARIN [Suspect]
     Active Substance: ESTROGENS, CONJUGATED
     Indication: FUNGAL INFECTION
     Dosage: UNK, 2X/WEEK (INSERT 1/4 APPLICATOR FULL VAGINALLY TWICE WEEKLY)
     Route: 067
  2. PREMARIN [Suspect]
     Active Substance: ESTROGENS, CONJUGATED
     Indication: URINARY TRACT INFECTION

REACTIONS (4)
  - Drug effective for unapproved indication [Unknown]
  - Product use in unapproved indication [Unknown]
  - Off label use [Unknown]
  - Body height decreased [Unknown]
